FAERS Safety Report 9604321 (Version 1)
Quarter: 2013Q4

REPORT INFORMATION
  Report Type: Spontaneous
  Country: GB (occurrence: GB)
  Receive Date: 20131008
  Receipt Date: 20131008
  Transmission Date: 20140711
  Serious: Yes (Other)
  Sender: FDA-Public Use
  Company Number: GB-ELI_LILLY_AND_COMPANY-GB201309009111

PATIENT
  Age: 65 Year
  Sex: Male

DRUGS (1)
  1. FLUOXETINE [Suspect]
     Dosage: 40 MG, UNKNOWN
     Route: 065

REACTIONS (2)
  - Major depression [Unknown]
  - Drug ineffective [Unknown]
